FAERS Safety Report 7737090-4 (Version None)
Quarter: 2011Q3

REPORT INFORMATION
  Report Type: 
  Country: None (occurrence: None)
  Receive Date: 20110908
  Receipt Date: 20110901
  Transmission Date: 20111222
  Serious: Yes (Hospitalization, Other)
  Sender: FDA-Public Use
  Company Number: US-PFIZER INC-2011204914

PATIENT
  Sex: Female
  Weight: 99.773 kg

DRUGS (7)
  1. HYDROCHLOROTHIAZIDE [Concomitant]
     Indication: HYPERTENSION
     Dosage: UNK
  2. FELDENE [Concomitant]
     Dosage: UNK
  3. FLEXERIL [Concomitant]
     Dosage: UNK
  4. ZESTORETIC [Concomitant]
     Indication: HYPERTENSION
     Dosage: UNK
  5. LIPITOR [Suspect]
     Indication: BLOOD CHOLESTEROL INCREASED
     Dosage: 20 MG, 1X/DAY
     Route: 048
     Dates: start: 20000101, end: 20101001
  6. DARVOCET [Concomitant]
     Dosage: UNK
  7. NEXIUM [Concomitant]
     Dosage: UNK

REACTIONS (6)
  - MYALGIA [None]
  - BLOOD GLUCOSE INCREASED [None]
  - MUSCLE SPASMS [None]
  - TREMOR [None]
  - MUSCLE DISORDER [None]
  - HYPERCHOLESTEROLAEMIA [None]
